FAERS Safety Report 9910283 (Version 4)
Quarter: 2014Q2

REPORT INFORMATION
  Report Type: Spontaneous
  Country: FR (occurrence: FR)
  Receive Date: 20140219
  Receipt Date: 20140617
  Transmission Date: 20141212
  Serious: Yes (Other)
  Sender: FDA-Public Use
  Company Number: FR-BAYER-2014-023156

PATIENT
  Age: 33 Year
  Sex: Female

DRUGS (1)
  1. MIRENA [Suspect]
     Indication: CONTRACEPTION
     Dosage: 20 MCG/24HR, CONT
     Route: 015
     Dates: start: 20100421, end: 20131125

REACTIONS (10)
  - Alopecia [Recovered/Resolved]
  - Menorrhagia [Recovered/Resolved]
  - Nausea [Recovered/Resolved]
  - Gastroenteritis viral [Recovered/Resolved]
  - Embedded device [Recovered/Resolved]
  - Device breakage [None]
  - Abdominal pain [Recovered/Resolved]
  - Back pain [Recovered/Resolved]
  - Embedded device [Recovered/Resolved]
  - Complication of device removal [Recovered/Resolved]
